FAERS Safety Report 9931901 (Version 2)
Quarter: 2014Q1

REPORT INFORMATION
  Report Type: Report from Study
  Country: CN (occurrence: CN)
  Receive Date: 20140228
  Receipt Date: 20140327
  Transmission Date: 20141002
  Serious: Yes (Hospitalization, Other)
  Sender: FDA-Public Use
  Company Number: CN-ASTELLAS-2014US002028

PATIENT
  Age: 67 Year
  Sex: Female

DRUGS (1)
  1. ERLOTINIB TABLET [Suspect]
     Indication: NON-SMALL CELL LUNG CANCER
     Dosage: 150 MG, UID/QD
     Route: 048
     Dates: start: 20120218

REACTIONS (5)
  - Fall [Unknown]
  - Head injury [Unknown]
  - Coma [Unknown]
  - Epilepsy [Unknown]
  - Depressed level of consciousness [Unknown]
